FAERS Safety Report 16911010 (Version 1)
Quarter: 2019Q4

REPORT INFORMATION
  Report Type: Spontaneous
  Country: GB (occurrence: GB)
  Receive Date: 20191012
  Receipt Date: 20191012
  Transmission Date: 20200122
  Serious: Yes (Other)
  Sender: FDA-Public Use
  Company Number: GB-CPL-000906

PATIENT
  Sex: Male

DRUGS (9)
  1. PROMETHAZINE [Suspect]
     Active Substance: PROMETHAZINE HYDROCHLORIDE
     Indication: PRODUCT USED FOR UNKNOWN INDICATION
     Dosage: AT NIGHT.
  2. OLANZAPINE. [Suspect]
     Active Substance: OLANZAPINE
     Indication: PRODUCT USED FOR UNKNOWN INDICATION
  3. FERROUS FUMARATE [Suspect]
     Active Substance: FERROUS FUMARATE
     Indication: ANAEMIA
     Dosage: MORNING AND NIGHT
  4. OLANZAPINE. [Suspect]
     Active Substance: OLANZAPINE
     Indication: PRODUCT USED FOR UNKNOWN INDICATION
  5. MIRTAZAPINE. [Suspect]
     Active Substance: MIRTAZAPINE
     Indication: PRODUCT USED FOR UNKNOWN INDICATION
     Dosage: NIGHT
     Route: 048
  6. ESCITALOPRAM [Suspect]
     Active Substance: ESCITALOPRAM OXALATE
     Indication: PRODUCT USED FOR UNKNOWN INDICATION
     Dosage: MORNING
  7. DIHYDROCODEINE [Suspect]
     Active Substance: DIHYDROCODEINE
     Indication: PAIN
     Dosage: TWO TO BE TAKEN FOUR TIMES A DAY IF REQUIRED.
  8. AZATHIOPRINE. [Suspect]
     Active Substance: AZATHIOPRINE
     Indication: COLITIS
     Dosage: WITH OR JUST AFTER FOOD
  9. FOLIC ACID. [Suspect]
     Active Substance: FOLIC ACID
     Indication: FOLATE DEFICIENCY
     Dosage: MORNING

REACTIONS (2)
  - Seizure [Unknown]
  - Autoscopy [Unknown]
